FAERS Safety Report 12290077 (Version 1)
Quarter: 2016Q2

REPORT INFORMATION
  Report Type: Spontaneous
  Country: US (occurrence: US)
  Receive Date: 20160421
  Receipt Date: 20160421
  Transmission Date: 20160815
  Serious: No
  Sender: FDA-Public Use
  Company Number: US-GLAXOSMITHKLINE-US2016052166

PATIENT
  Age: 59 Year
  Sex: Male

DRUGS (1)
  1. EQUATE NICOTINE [Suspect]
     Active Substance: NICOTINE
     Indication: SMOKING CESSATION THERAPY
     Dosage: 14 MG, UNK
     Dates: start: 20160413

REACTIONS (4)
  - Nausea [Not Recovered/Not Resolved]
  - Malaise [Unknown]
  - Cardiac disorder [Unknown]
  - Lethargy [Not Recovered/Not Resolved]
